FAERS Safety Report 17812809 (Version 2)
Quarter: 2020Q2

REPORT INFORMATION
  Report Type: Spontaneous
  Country: US (occurrence: US)
  Receive Date: 20200521
  Receipt Date: 20200611
  Transmission Date: 20200714
  Serious: No
  Sender: FDA-Public Use
  Company Number: US-ELI_LILLY_AND_COMPANY-US202005007668

PATIENT

DRUGS (3)
  1. BOTOX [Concomitant]
     Active Substance: ONABOTULINUMTOXINA
     Indication: MIGRAINE
     Dosage: 1 DOSAGE FORM, UNKNOWN
     Route: 065
  2. RIMEGEPANT. [Concomitant]
     Active Substance: RIMEGEPANT
     Indication: MIGRAINE
     Dosage: 75 MG, OTHER
     Route: 065
  3. REYVOW [Suspect]
     Active Substance: LASMIDITAN
     Indication: MIGRAINE
     Dosage: 100 MG, OTHER
     Route: 048

REACTIONS (5)
  - Headache [Recovered/Resolved]
  - Wrong technique in product usage process [Unknown]
  - Euphoric mood [Recovered/Resolved]
  - Therapeutic product effect decreased [Not Recovered/Not Resolved]
  - Logorrhoea [Recovered/Resolved]
